FAERS Safety Report 5705227-4 (Version None)
Quarter: 2008Q2

REPORT INFORMATION
  Report Type: 
  Country: None (occurrence: None)
  Receive Date: 20080411
  Receipt Date: 20080402
  Transmission Date: 20081010
  Serious: Yes (Hospitalization, Other)
  Sender: FDA-Public Use
  Company Number: 2000-07-0136

PATIENT
  Age: 47 Year
  Sex: Female

DRUGS (3)
  1. REBETOL [Suspect]
     Indication: HEPATITIS C
     Dosage: 1200 MG; QD; PO
     Route: 048
     Dates: start: 20000104, end: 20000901
  2. INTRON A [Suspect]
     Indication: HEPATITIS C
     Dosage: 3 MIU; TIW; SC
     Route: 058
     Dates: start: 20000104, end: 20000901
  3. XANAX [Concomitant]

REACTIONS (6)
  - ANAEMIA [None]
  - CHEST PAIN [None]
  - DEHYDRATION [None]
  - LOSS OF CONSCIOUSNESS [None]
  - ORAL INTAKE REDUCED [None]
  - WEIGHT DECREASED [None]
